FAERS Safety Report 6230934-7 (Version None)
Quarter: 2009Q2

REPORT INFORMATION
  Report Type: 
  Country: None (occurrence: None)
  Receive Date: 20090616
  Receipt Date: 20090603
  Transmission Date: 20091009
  Serious: No
  Sender: FDA-Public Use
  Company Number: US-B.I. PHARMACEUTICALS,INC./RIDGEFIELD-2009-BP-06879BP

PATIENT
  Sex: Female

DRUGS (4)
  1. MICARDIS [Suspect]
     Route: 048
     Dates: end: 20090501
  2. HYDRODIURIL [Concomitant]
     Dosage: 12.5MG
     Route: 048
  3. AMLODIPINE [Concomitant]
     Route: 048
  4. LABETALOL HCL [Concomitant]
     Route: 048

REACTIONS (2)
  - JOINT SWELLING [None]
  - PHOTOSENSITIVITY REACTION [None]
